FAERS Safety Report 8504297-8 (Version None)
Quarter: 2012Q3

REPORT INFORMATION
  Report Type: 
  Country: None (occurrence: None)
  Receive Date: 20120711
  Receipt Date: 20120625
  Transmission Date: 20120928
  Serious: No
  Sender: FDA-Public Use
  Company Number: US-MYLANLABS-2012S1011278

PATIENT
  Age: 49 Year
  Sex: Female
  Weight: 71.44 kg

DRUGS (5)
  1. ZANTAC [Concomitant]
  2. METOPROLOL SUCCINATE [Suspect]
     Indication: HYPERTENSION
     Route: 048
     Dates: start: 20120309, end: 20120501
  3. FIORICET [Concomitant]
  4. FISH OIL [Concomitant]
  5. OMEPRAZOLE [Concomitant]

REACTIONS (1)
  - RASH ERYTHEMATOUS [None]
